FAERS Safety Report 6845202-X (Version None)
Quarter: 2010Q3

REPORT INFORMATION
  Report Type: 
  Country: None (occurrence: None)
  Receive Date: 20100715
  Receipt Date: 20070814
  Transmission Date: 20110219
  Serious: No
  Sender: FDA-Public Use
  Company Number: US-PFIZER INC-2007068556

PATIENT
  Sex: Female

DRUGS (8)
  1. CHANTIX [Suspect]
     Indication: SMOKING CESSATION THERAPY
     Dates: start: 20070731
  2. NEXIUM [Concomitant]
  3. MINOCYCLINE [Concomitant]
  4. VALSARTAN [Concomitant]
  5. SOMA [Concomitant]
     Dosage: 350MG,AS NEEDED
  6. REGLAN [Concomitant]
  7. VOLTAREN [Concomitant]
  8. METRONIDAZOLE [Concomitant]

REACTIONS (2)
  - DYSPHAGIA [None]
  - THROAT IRRITATION [None]
